FAERS Safety Report 15772205 (Version 1)
Quarter: 2018Q4

REPORT INFORMATION
  Report Type: Spontaneous
  Country: FR (occurrence: FR)
  Receive Date: 20181228
  Receipt Date: 20181228
  Transmission Date: 20190205
  Serious: Yes (Hospitalization)
  Sender: FDA-Public Use
  Company Number: FR-SA-2018SA392476

PATIENT
  Age: 89 Year
  Sex: Male
  Weight: 80 kg

DRUGS (4)
  1. GENTAMICINE [GENTAMICIN] [Suspect]
     Active Substance: GENTAMICIN
     Indication: SEPSIS
     Dosage: UNK
     Route: 042
     Dates: start: 20181103, end: 20181116
  2. PLAVIX [Suspect]
     Active Substance: CLOPIDOGREL BISULFATE
     Indication: ATRIAL FIBRILLATION
     Dosage: 75 MG, QD
     Route: 048
  3. LOVENOX [Suspect]
     Active Substance: ENOXAPARIN SODIUM
     Indication: ATRIAL FIBRILLATION
     Dosage: 1 DF, QD
     Route: 058
     Dates: start: 20181109
  4. FLUINDIONE [Suspect]
     Active Substance: FLUINDIONE
     Indication: ATRIAL FIBRILLATION
     Dosage: UNK
     Route: 048

REACTIONS (1)
  - Purpura [Recovering/Resolving]

NARRATIVE: CASE EVENT DATE: 20181113
